FAERS Safety Report 8384210-7 (Version None)
Quarter: 2012Q2

REPORT INFORMATION
  Report Type: 
  Country: None (occurrence: None)
  Receive Date: 20120524
  Receipt Date: 20120521
  Transmission Date: 20120825
  Serious: No
  Sender: FDA-Public Use
  Company Number: US-PFIZER INC-2012109064

PATIENT
  Sex: Female

DRUGS (1)
  1. LYRICA [Suspect]
     Dosage: UNK
     Dates: start: 20111201

REACTIONS (4)
  - BONE PAIN [None]
  - PAIN [None]
  - MYALGIA [None]
  - INTENTIONAL DRUG MISUSE [None]
